FAERS Safety Report 4284766-X (Version None)
Quarter: 2004Q1

REPORT INFORMATION
  Report Type: 
  Country: None (occurrence: None)
  Receive Date: 20040202
  Receipt Date: 20040122
  Transmission Date: 20041129
  Serious: Yes (Death)
  Sender: FDA-Public Use
  Company Number: GB-JNJFOC-20040104450

PATIENT
  Age: 74 Year
  Sex: Female

DRUGS (1)
  1. REMICADE [Suspect]
     Indication: RHEUMATOID ARTHRITIS
     Dosage: 235 MG, INTRAVENOUS
     Route: 042
     Dates: start: 20020109, end: 20030701

REACTIONS (1)
  - PANCREATIC CARCINOMA METASTATIC [None]
